FAERS Safety Report 4466282-5 (Version None)
Quarter: 2004Q3

REPORT INFORMATION
  Report Type: 
  Country: None (occurrence: None)
  Receive Date: 20040930
  Receipt Date: 20040921
  Transmission Date: 20050211
  Serious: Yes (Other)
  Sender: FDA-Public Use
  Company Number: 2004-08-1647

PATIENT
  Age: 69 Year
  Sex: Male
  Weight: 86 kg

DRUGS (1)
  1. INTRON A [Suspect]
     Indication: MALIGNANT MELANOMA
     Dosage: 6 MIU TIW SUBCUTANEOUS
     Route: 058
     Dates: start: 20030601

REACTIONS (2)
  - INJECTION SITE ABSCESS [None]
  - INJECTION SITE NECROSIS [None]
